FAERS Safety Report 15299421 (Version 15)
Quarter: 2020Q1

REPORT INFORMATION
  Report Type: Report from Study
  Country: None (occurrence: FR)
  Receive Date: 20180821
  Receipt Date: 20200220
  Transmission Date: 20200409
  Serious: Yes (Death, Other)
  Sender: FDA-Public Use
  Company Number: FR-ABBVIE-18K-056-2443457-00

PATIENT
  Age: 78 Year
  Sex: Male
  Weight: 60 kg

DRUGS (34)
  1. XATRAL [Concomitant]
     Active Substance: ALFUZOSIN
     Indication: BENIGN PROSTATIC HYPERPLASIA
     Dates: start: 20180507, end: 20180613
  2. SODIUM CHLOROAURATE [Concomitant]
     Indication: FLUID OVERLOAD
     Dosage: SODIUM CHLORATE 0.9%
     Dates: start: 20180507, end: 20180511
  3. MAXIDEX [Concomitant]
     Active Substance: DEXAMETHASONE
     Dates: start: 20180606
  4. AZITHROMYCINE [Concomitant]
     Active Substance: AZITHROMYCIN
     Indication: PRODUCT USED FOR UNKNOWN INDICATION
     Dates: start: 20180508, end: 20180610
  5. PARACETAMOL [Concomitant]
     Active Substance: ACETAMINOPHEN
     Indication: PAIN
     Dosage: IF REQUIRED
     Dates: start: 20180507
  6. ACUPAN [Concomitant]
     Active Substance: NEFOPAM HYDROCHLORIDE
     Indication: PAIN
     Dosage: IF REQUIRED
     Dates: start: 20180507, end: 20180608
  7. SODIUM CHLOROAURATE [Concomitant]
     Dates: start: 20180523, end: 20180524
  8. SODIUM CHLOROAURATE [Concomitant]
     Dates: start: 20180606, end: 20180608
  9. TRANXENE [Concomitant]
     Active Substance: CLORAZEPATE DIPOTASSIUM
     Dates: start: 20180606, end: 20180608
  10. VENCLYXTO [Suspect]
     Active Substance: VENETOCLAX
     Indication: CHRONIC LYMPHOCYTIC LEUKAEMIA
     Route: 048
     Dates: start: 20180509, end: 20180515
  11. ALGINATE DE SODIUM/BICARBONATE DE SODIUM [Concomitant]
     Indication: DYSPEPSIA
     Dosage: IF REQUIRED
     Dates: start: 20180509, end: 20180610
  12. JOSIR [Concomitant]
     Active Substance: TAMSULOSIN
     Indication: BENIGN PROSTATIC HYPERPLASIA
     Dates: start: 20180507, end: 20180611
  13. TRANXENE [Concomitant]
     Active Substance: CLORAZEPATE DIPOTASSIUM
     Dates: start: 20180530, end: 20180531
  14. VENCLYXTO [Suspect]
     Active Substance: VENETOCLAX
     Route: 048
     Dates: start: 2019, end: 201902
  15. TOBRADEX [Concomitant]
     Active Substance: DEXAMETHASONE\TOBRAMYCIN
     Indication: VISUAL IMPAIRMENT
     Dates: start: 20180517, end: 20180605
  16. TRANXENE [Concomitant]
     Active Substance: CLORAZEPATE DIPOTASSIUM
     Indication: ANXIETY
     Dates: start: 20180507, end: 20180511
  17. TRANXENE [Concomitant]
     Active Substance: CLORAZEPATE DIPOTASSIUM
     Dates: start: 20180523, end: 20180524
  18. PREDNISONE. [Concomitant]
     Active Substance: PREDNISONE
     Indication: ARTHRITIS BACTERIAL
     Dates: start: 20180613, end: 20180622
  19. MAXIDEX [Concomitant]
     Active Substance: DEXAMETHASONE
     Indication: VISUAL IMPAIRMENT
     Dates: start: 20180507
  20. MECIR [Concomitant]
     Active Substance: TAMSULOSIN HYDROCHLORIDE
     Indication: BENIGN PROSTATIC HYPERPLASIA
  21. VENCLYXTO [Suspect]
     Active Substance: VENETOCLAX
     Route: 048
     Dates: start: 20180516, end: 20180522
  22. VENCLYXTO [Suspect]
     Active Substance: VENETOCLAX
     Route: 048
     Dates: start: 20180523, end: 20180529
  23. SODIUM BICARBONATE. [Concomitant]
     Active Substance: SODIUM BICARBONATE
     Indication: ORAL PAIN
     Dates: start: 20180507
  24. MYDRIATICUM [Concomitant]
     Active Substance: TROPICAMIDE
     Indication: VISUAL IMPAIRMENT
     Dates: start: 20180507, end: 20180605
  25. REFRESH CELLUVISC [Concomitant]
     Active Substance: CARBOXYMETHYLCELLULOSE SODIUM
     Indication: VISUAL IMPAIRMENT
     Dates: start: 20180606
  26. ALPRAZOLAM. [Concomitant]
     Active Substance: ALPRAZOLAM
     Indication: ANXIOLYTIC THERAPY
     Dates: start: 20181116
  27. VENCLYXTO [Suspect]
     Active Substance: VENETOCLAX
     Dosage: DOSE DECREASED
     Route: 048
     Dates: start: 20180606, end: 20190122
  28. ALLOPURINOL. [Concomitant]
     Active Substance: ALLOPURINOL
     Indication: PRODUCT USED FOR UNKNOWN INDICATION
     Dates: start: 20180507, end: 20180610
  29. SODIUM CHLOROAURATE [Concomitant]
     Dates: start: 20180515, end: 20180518
  30. TRANXENE [Concomitant]
     Active Substance: CLORAZEPATE DIPOTASSIUM
     Dates: start: 20180515, end: 20180518
  31. VENCLYXTO [Suspect]
     Active Substance: VENETOCLAX
     Route: 048
     Dates: start: 20180530, end: 20180605
  32. MAXIDEX [Concomitant]
     Active Substance: DEXAMETHASONE
     Indication: VISUAL IMPAIRMENT
     Dates: start: 20180507, end: 20180514
  33. GLUCOSE [Concomitant]
     Active Substance: DEXTROSE
     Indication: FLUID OVERLOAD
     Dosage: GLUCOSE 5%
     Dates: start: 20180530, end: 20180531
  34. NOCTAMIDE [Concomitant]
     Active Substance: LORMETAZEPAM
     Indication: PROPHYLAXIS
     Dates: start: 20181116

REACTIONS (21)
  - Pain [Recovered/Resolved]
  - Sleep disorder [Not Recovered/Not Resolved]
  - Hyperkalaemia [Recovered/Resolved]
  - Influenza [Recovered/Resolved]
  - Arthritis bacterial [Recovered/Resolved]
  - Neutropenia [Recovered/Resolved]
  - Muscle spasms [Recovered/Resolved]
  - Ascites [Not Recovered/Not Resolved]
  - Incorrect dose administered [Not Recovered/Not Resolved]
  - Thrombocytopenia [Not Recovered/Not Resolved]
  - Dysphagia [Recovered/Resolved]
  - Oral fungal infection [Recovered/Resolved]
  - Hyperkalaemia [Recovered/Resolved]
  - General physical condition abnormal [Fatal]
  - Neutropenia [Recovered/Resolved]
  - Asthenia [Recovered/Resolved with Sequelae]
  - Hyperkalaemia [Recovered/Resolved]
  - Hepatic failure [Not Recovered/Not Resolved]
  - Chronic lymphocytic leukaemia [Not Recovered/Not Resolved]
  - Pain [Recovered/Resolved]
  - Anaemia [Not Recovered/Not Resolved]

NARRATIVE: CASE EVENT DATE: 20180509
